FAERS Safety Report 12631550 (Version 2)
Quarter: 2016Q3

REPORT INFORMATION
  Report Type: Spontaneous
  Country: US (occurrence: US)
  Receive Date: 20160808
  Receipt Date: 20160808
  Transmission Date: 20161109
  Serious: No
  Sender: FDA-Public Use
  Company Number: US-BEH-2015054591

PATIENT
  Sex: Female
  Weight: 63 kg

DRUGS (9)
  1. HIZENTRA [Suspect]
     Active Substance: HUMAN IMMUNOGLOBULIN G
     Indication: HETEROTAXIA
     Dosage: 4 GM 20 ML VIAL
     Route: 058
  2. OXYGEN. [Concomitant]
     Active Substance: OXYGEN
  3. DIPHENHYDRAMINE. [Concomitant]
     Active Substance: DIPHENHYDRAMINE
     Indication: ANAPHYLACTIC REACTION
  4. FLOVENT [Concomitant]
     Active Substance: FLUTICASONE PROPIONATE
  5. LMX [Concomitant]
     Active Substance: LIDOCAINE
  6. LIDOCAINE/PRILOCAINE [Concomitant]
     Active Substance: LIDOCAINE\PRILOCAINE
  7. ALBUTEROL. [Concomitant]
     Active Substance: ALBUTEROL
  8. HIZENTRA [Suspect]
     Active Substance: HUMAN IMMUNOGLOBULIN G
     Indication: HYPER IGM SYNDROME
     Dosage: 4 GM 20 ML VIAL
     Route: 058
  9. ZANTAC [Concomitant]
     Active Substance: RANITIDINE HYDROCHLORIDE

REACTIONS (3)
  - Respiratory rate increased [Unknown]
  - Pain in extremity [Unknown]
  - Pyrexia [Unknown]
